FAERS Safety Report 18358872 (Version 3)
Quarter: 2022Q4

REPORT INFORMATION
  Report Type: Report from Study
  Country: US (occurrence: US)
  Receive Date: 20201008
  Receipt Date: 20221014
  Transmission Date: 20230113
  Serious: Yes (Hospitalization, Other)
  Sender: FDA-Public Use
  Company Number: US-GILEAD-2020-0497949

PATIENT
  Age: 53 Year
  Sex: Female

DRUGS (1)
  1. AMBRISENTAN [Suspect]
     Active Substance: AMBRISENTAN
     Indication: Product used for unknown indication
     Dosage: 10 MG
     Route: 065
     Dates: start: 20201010

REACTIONS (4)
  - Pulmonary embolism [Unknown]
  - Pulmonary hypertension [Unknown]
  - Weight decreased [Unknown]
  - Product use issue [Unknown]
